FAERS Safety Report 24135522 (Version 2)
Quarter: 2024Q3

REPORT INFORMATION
  Report Type: Spontaneous
  Country: AU (occurrence: AU)
  Receive Date: 20240725
  Receipt Date: 20240827
  Transmission Date: 20241016
  Serious: Yes (Hospitalization, Other)
  Sender: SANOFI AVENTIS
  Company Number: AU-MLMSERVICE-20240628-PI112925-00232-1

PATIENT
  Age: 41 Year
  Sex: Male

DRUGS (10)
  1. PREDNISOLONE [Suspect]
     Active Substance: PREDNISOLONE
     Indication: Immunosuppressant drug therapy
     Dosage: UNK,INCREASED DOSES
     Dates: start: 202302
  2. PREDNISOLONE [Suspect]
     Active Substance: PREDNISOLONE
     Dosage: UNK,WEANING DOSE
     Dates: start: 201911
  3. ANTI-THYMOCYTE GLOBULIN (RABBIT) NOS [Suspect]
     Active Substance: LAPINE T-LYMPHOCYTE IMMUNE GLOBULIN
     Indication: Liver transplant rejection
     Dosage: UNK
     Route: 042
     Dates: start: 202302
  4. METHYLPREDNISOLONE [Suspect]
     Active Substance: METHYLPREDNISOLONE
     Indication: Immunosuppressant drug therapy
     Dosage: UNK,RECEIVED ANOTHER COURSE OF INTRAVENOUS METHYLPREDNISOLONE
     Route: 042
     Dates: start: 202301
  5. METHYLPREDNISOLONE [Suspect]
     Active Substance: METHYLPREDNISOLONE
     Dosage: 1 G
     Dates: start: 202112
  6. METHYLPREDNISOLONE [Suspect]
     Active Substance: METHYLPREDNISOLONE
     Dosage: UNK,INDUCTION THERAPY
     Dates: start: 201911
  7. MYCOPHENOLATE MOFETIL [Suspect]
     Active Substance: MYCOPHENOLATE MOFETIL
     Indication: Immunosuppressant drug therapy
     Dosage: UNK
     Dates: start: 201911
  8. TACROLIMUS [Suspect]
     Active Substance: TACROLIMUS
     Indication: Immunosuppressant drug therapy
     Dosage: UNK
     Dates: start: 201911
  9. TACROLIMUS [Suspect]
     Active Substance: TACROLIMUS
     Dosage: UNK,INCREASED DOSE
     Dates: start: 202302
  10. EVEROLIMUS [Concomitant]
     Active Substance: EVEROLIMUS
     Indication: Hepatocellular carcinoma
     Dosage: UNK
     Dates: start: 202004

REACTIONS (2)
  - Microangiopathic haemolytic anaemia [Recovered/Resolved]
  - Hepatitis E [Recovered/Resolved]

NARRATIVE: CASE EVENT DATE: 20200401
